FAERS Safety Report 11047364 (Version 1)
Quarter: 2015Q2

REPORT INFORMATION
  Report Type: Spontaneous
  Country: CN (occurrence: None)
  Receive Date: 20150416
  Receipt Date: 20150416
  Transmission Date: 20150821
  Serious: Yes (Hospitalization, Other)
  Sender: FDA-Public Use
  Company Number: CN2015GSK046712

PATIENT
  Age: 49 Year
  Sex: Male
  Weight: 89 kg

DRUGS (2)
  1. ADEFOVIR DIPIVOXIL. [Suspect]
     Active Substance: ADEFOVIR DIPIVOXIL
     Indication: HEPATITIS B
  2. HEPTODIN [Suspect]
     Active Substance: LAMIVUDINE
     Indication: HEPATITIS B
     Dosage: 1 DFM 1D, ORAL
     Route: 048
     Dates: start: 201501

REACTIONS (6)
  - Flatulence [None]
  - Suspected counterfeit product [None]
  - Jaundice [None]
  - Intestinal obstruction [None]
  - Decreased appetite [None]
  - Perihepatic discomfort [None]

NARRATIVE: CASE EVENT DATE: 20150301
